FAERS Safety Report 11702077 (Version 1)
Quarter: 2015Q4

REPORT INFORMATION
  Report Type: Spontaneous
  Country: CA (occurrence: CA)
  Receive Date: 20151105
  Receipt Date: 20151105
  Transmission Date: 20160304
  Serious: Yes (Hospitalization)
  Sender: FDA-Public Use
  Company Number: CA-TEVA-605663ACC

PATIENT
  Age: 86 Year
  Sex: Male
  Weight: 85 kg

DRUGS (5)
  1. CONTRAST DYE [Concomitant]
     Active Substance: UNSPECIFIED INGREDIENT
  2. LEVOFLOXACIN. [Concomitant]
     Active Substance: LEVOFLOXACIN
  3. CIPROFLOXACIN INJECTION USP [Suspect]
     Active Substance: CIPROFLOXACIN
     Indication: APPENDICITIS
     Dosage: 800 MILLIGRAM DAILY;
     Route: 042
  4. METRONIDAZOLE 5 MG/ML INJECTION [Suspect]
     Active Substance: METRONIDAZOLE
     Indication: APPENDICITIS
     Dosage: 1500 MILLIGRAM DAILY;
     Route: 042
  5. ENOXAPARIN [Concomitant]
     Active Substance: ENOXAPARIN

REACTIONS (4)
  - Local swelling [Unknown]
  - Swollen tongue [Unknown]
  - Dysphonia [Unknown]
  - Rash [Unknown]
